FAERS Safety Report 5585150-9 (Version None)
Quarter: 2008Q1

REPORT INFORMATION
  Report Type: 
  Country: None (occurrence: None)
  Receive Date: 20080104
  Receipt Date: 20080104
  Transmission Date: 20080703
  Serious: Yes (Hospitalization)
  Sender: FDA-Public Use
  Company Number: None

PATIENT
  Age: 84 Year
  Sex: Female

DRUGS (9)
  1. CIPROFLOXACIN [Suspect]
     Indication: INFECTION
     Dates: start: 20070504, end: 20070505
  2. PRAVASTATIN [Suspect]
  3. METOPROLOL [Concomitant]
  4. ALTACE [Concomitant]
  5. FERROUS SULFATE TAB [Concomitant]
  6. COLACE [Concomitant]
  7. ATROVENT [Concomitant]
  8. XOPENEX [Concomitant]
  9. POTASSIUM PHOSPHATES [Concomitant]

REACTIONS (1)
  - LEUKOPENIA [None]
